FAERS Safety Report 10195903 (Version 2)
Quarter: 2014Q2

REPORT INFORMATION
  Report Type: Report from Study
  Country: DE (occurrence: DE)
  Receive Date: 20140527
  Receipt Date: 20140527
  Transmission Date: 20141212
  Serious: Yes (Hospitalization, Other)
  Sender: FDA-Public Use
  Company Number: DE-ALEXION PHARMACEUTICALS INC.-A201302635

PATIENT
  Sex: 0

DRUGS (1)
  1. ECULIZUMAB [Suspect]
     Indication: HAEMOLYTIC URAEMIC SYNDROME
     Dosage: 600 MG, UNK
     Route: 042
     Dates: start: 20120504, end: 20120727

REACTIONS (5)
  - Bacterial sepsis [Unknown]
  - Epidermolysis [Unknown]
  - Herpes simplex [Unknown]
  - Catheter placement [Recovered/Resolved]
  - Drug ineffective [Unknown]
